FAERS Safety Report 9816669 (Version 1)
Quarter: 2014Q1

REPORT INFORMATION
  Report Type: Spontaneous
  Country: US (occurrence: US)
  Receive Date: 20140114
  Receipt Date: 20140114
  Transmission Date: 20141002
  Serious: Yes (Other)
  Sender: FDA-Public Use
  Company Number: US-ENDO PHARMACEUTICALS INC.-PERC20130132

PATIENT
  Sex: Male

DRUGS (1)
  1. PERCOCET [Suspect]
     Indication: DRUG DEPENDENCE
     Dosage: 10 TABLETS
     Route: 065
     Dates: start: 2003

REACTIONS (1)
  - Drug dependence [Not Recovered/Not Resolved]
